FAERS Safety Report 24261748 (Version 1)
Quarter: 2024Q3

REPORT INFORMATION
  Report Type: Spontaneous
  Country: CA (occurrence: CA)
  Receive Date: 20240829
  Receipt Date: 20240829
  Transmission Date: 20241017
  Serious: Yes (Death)
  Sender: TEVA
  Company Number: CA-TEVA-VS-3235870

PATIENT

DRUGS (2)
  1. METHOTREXATE SODIUM [Suspect]
     Active Substance: METHOTREXATE SODIUM
     Indication: Chemotherapy
     Route: 065
  2. PENICILLIN [Interacting]
     Active Substance: PENICILLIN
     Indication: Chemotherapy
     Route: 065

REACTIONS (2)
  - Drug interaction [Fatal]
  - Death [Fatal]
